FAERS Safety Report 10159282 (Version 1)
Quarter: 2014Q2

REPORT INFORMATION
  Report Type: Spontaneous
  Country: US (occurrence: None)
  Receive Date: 20140506
  Receipt Date: 20140506
  Transmission Date: 20141212
  Serious: Yes (Other)
  Sender: FDA-Public Use
  Company Number: 2014P1003397

PATIENT
  Age: 35 Year
  Sex: Female

DRUGS (4)
  1. METHYLPREDNISOLONE [Suspect]
     Indication: EPILEPSY
  2. METHYLPREDNISOLONE [Suspect]
     Indication: AUTOIMMUNE DISORDER
  3. LEVETIRACETAM [Concomitant]
  4. PHENOBRABITAL [Concomitant]

REACTIONS (4)
  - Paralysis [None]
  - Speech disorder [None]
  - Autonomic nervous system imbalance [None]
  - Drug intolerance [None]
